FAERS Safety Report 13202990 (Version 1)
Quarter: 2017Q1

REPORT INFORMATION
  Report Type: Spontaneous
  Country: US (occurrence: US)
  Receive Date: 20170209
  Receipt Date: 20170209
  Transmission Date: 20170428
  Serious: No
  Sender: FDA-Public Use
  Company Number: US-MYLANLABS-2016M1020121

PATIENT
  Age: 76 Year
  Sex: Female

DRUGS (3)
  1. ARMOUR THYROID [Concomitant]
     Active Substance: THYROID, PORCINE
     Dosage: UNK
  2. METOPROLOL SUCCINATE EXTENDED-RELEASE TABLETS, USP [Suspect]
     Active Substance: METOPROLOL SUCCINATE
     Indication: PALPITATIONS
     Dosage: 25 MG, HS
     Route: 048
  3. METOPROLOL SUCCINATE EXTENDED-RELEASE TABLETS, USP [Suspect]
     Active Substance: METOPROLOL SUCCINATE
     Indication: OFF LABEL USE

REACTIONS (1)
  - Drug ineffective for unapproved indication [Recovered/Resolved]

NARRATIVE: CASE EVENT DATE: 20160512
